FAERS Safety Report 22361685 (Version 1)
Quarter: 2023Q2

REPORT INFORMATION
  Report Type: Spontaneous
  Country: US (occurrence: None)
  Receive Date: 20230524
  Receipt Date: 20230524
  Transmission Date: 20230722
  Serious: Yes (Hospitalization)
  Sender: FDA-Public Use
  Company Number: None

PATIENT
  Sex: Male

DRUGS (1)
  1. AMBRISENTAN [Suspect]
     Active Substance: AMBRISENTAN
     Indication: Pulmonary hypertension
     Dosage: 10 MG ORAL??TAKE 1 TABLET BY MOUTH ONCE DAILY
     Route: 048
     Dates: start: 20221007

REACTIONS (7)
  - Hypertension [None]
  - Dyspnoea [None]
  - Swelling [None]
  - Feeling cold [None]
  - Fatigue [None]
  - Fatigue [None]
  - Thrombosis [None]

NARRATIVE: CASE EVENT DATE: 20230522
